FAERS Safety Report 4924914-9 (Version None)
Quarter: 2006Q1

REPORT INFORMATION
  Report Type: 
  Country: None (occurrence: None)
  Receive Date: 20060222
  Receipt Date: 20060214
  Transmission Date: 20060701
  Serious: Yes (Death)
  Sender: FDA-Public Use
  Company Number: 220627

PATIENT
  Age: 27 Year
  Sex: Female

DRUGS (6)
  1. XOLAIR [Suspect]
     Indication: ASTHMA
     Dosage: 225 MG, Q2W, SUBCUTANEOUS
     Route: 058
     Dates: start: 20050609, end: 20051117
  2. CORTICOSTEROID NOS (CORTICOSTEROID NOS) [Concomitant]
  3. BETA-2 AGONIST NOS (BETA-2 AGONIST NOS) [Concomitant]
  4. PULMICORT [Concomitant]
  5. SINGULAIR [Concomitant]
  6. RHINOCORT AQUA (BUDESONIDE) [Concomitant]

REACTIONS (7)
  - CHEST DISCOMFORT [None]
  - DRUG EXPOSURE DURING PREGNANCY [None]
  - DRUG INEFFECTIVE [None]
  - DYSPNOEA [None]
  - FALL [None]
  - LOSS OF CONSCIOUSNESS [None]
  - PREGNANCY [None]
